FAERS Safety Report 23744502 (Version 1)
Quarter: 2024Q2

REPORT INFORMATION
  Report Type: Spontaneous
  Country: FR (occurrence: FR)
  Receive Date: 20240415
  Receipt Date: 20240415
  Transmission Date: 20240715
  Serious: Yes (Hospitalization)
  Sender: FDA-Public Use
  Company Number: None

PATIENT
  Age: 66 Year
  Sex: Male
  Weight: 85 kg

DRUGS (23)
  1. PACLITAXEL [Suspect]
     Active Substance: PACLITAXEL
     Indication: Lung adenocarcinoma
     Dosage: 175 MG, SINGLE
     Route: 041
     Dates: start: 20231212, end: 20231212
  2. PACLITAXEL [Suspect]
     Active Substance: PACLITAXEL
     Dosage: 175 MG, SINGLE
     Route: 041
     Dates: start: 20231219, end: 20231219
  3. PACLITAXEL [Suspect]
     Active Substance: PACLITAXEL
     Dosage: 175 MG, SINGLE
     Route: 041
     Dates: start: 20231226, end: 20231226
  4. PACLITAXEL [Suspect]
     Active Substance: PACLITAXEL
     Dosage: 78 MG, SINGLE
     Route: 041
     Dates: start: 20240116, end: 20240116
  5. PACLITAXEL [Suspect]
     Active Substance: PACLITAXEL
     Dosage: 78 MG, SINGLE
     Route: 041
     Dates: start: 20240123, end: 20240123
  6. PACLITAXEL [Suspect]
     Active Substance: PACLITAXEL
     Dosage: 78 MG, 1X/DAY
     Route: 041
     Dates: start: 20240130, end: 20240130
  7. PACLITAXEL [Suspect]
     Active Substance: PACLITAXEL
     Dosage: 78 MG, SINGLE
     Route: 041
     Dates: start: 20240206, end: 20240206
  8. PACLITAXEL [Suspect]
     Active Substance: PACLITAXEL
     Dosage: 78 MG, SINGLE
     Route: 041
     Dates: start: 20240213, end: 20240213
  9. PACLITAXEL [Suspect]
     Active Substance: PACLITAXEL
     Dosage: 78 MG, SINGLE
     Route: 041
     Dates: start: 20240220, end: 20240220
  10. PACLITAXEL [Suspect]
     Active Substance: PACLITAXEL
     Dosage: 78 MG, SINGLE
     Route: 041
     Dates: start: 20240227, end: 20240227
  11. CARBOPLATIN [Suspect]
     Active Substance: CARBOPLATIN
     Indication: Lung adenocarcinoma
     Dosage: 540 MG, SINGLE
     Route: 041
     Dates: start: 20231212, end: 20231212
  12. CARBOPLATIN [Suspect]
     Active Substance: CARBOPLATIN
     Dosage: 218 MG, SINGLE
     Route: 041
     Dates: start: 20240116, end: 20240116
  13. CARBOPLATIN [Suspect]
     Active Substance: CARBOPLATIN
     Dosage: 213 MG, SINGLE
     Route: 041
     Dates: start: 20240123, end: 20240123
  14. CARBOPLATIN [Suspect]
     Active Substance: CARBOPLATIN
     Dosage: 208 MG, SINGLE
     Route: 041
     Dates: start: 20240130, end: 20240130
  15. CARBOPLATIN [Suspect]
     Active Substance: CARBOPLATIN
     Dosage: 204 MG, SINGLE
     Route: 041
     Dates: start: 20240206, end: 20240206
  16. CARBOPLATIN [Suspect]
     Active Substance: CARBOPLATIN
     Dosage: 224 MG, SINGLE
     Route: 041
     Dates: start: 20240213, end: 20240213
  17. CARBOPLATIN [Suspect]
     Active Substance: CARBOPLATIN
     Dosage: 213 MG, SINGLE
     Route: 041
     Dates: start: 20240220, end: 20240220
  18. CARBOPLATIN [Suspect]
     Active Substance: CARBOPLATIN
     Dosage: 208 MG, SINGLE
     Route: 041
     Dates: start: 20240227, end: 20240227
  19. AMIODARONE [Suspect]
     Active Substance: AMIODARONE
     Indication: Atrial fibrillation
     Dosage: 200 MG, 1X/DAY (MORNING)
     Route: 048
     Dates: start: 20240130, end: 20240318
  20. LOSARTAN POTASSIUM [Concomitant]
     Active Substance: LOSARTAN POTASSIUM
     Dosage: 50 MG, 1X/DAY (MORNING)
  21. TADALAFIL [Concomitant]
     Active Substance: TADALAFIL
     Dosage: 5 MG, AS NEEDED
  22. ELIQUIS [Concomitant]
     Active Substance: APIXABAN
     Dosage: UNK
     Dates: start: 202401
  23. BISOPROLOL [Concomitant]
     Active Substance: BISOPROLOL\BISOPROLOL FUMARATE
     Dosage: UNK
     Dates: start: 202401

REACTIONS (1)
  - Interstitial lung disease [Not Recovered/Not Resolved]

NARRATIVE: CASE EVENT DATE: 20240312
